FAERS Safety Report 24268706 (Version 1)
Quarter: 2024Q3

REPORT INFORMATION
  Report Type: Spontaneous
  Country: US (occurrence: None)
  Receive Date: 20240829
  Receipt Date: 20240829
  Transmission Date: 20241017
  Serious: Yes (Life-Threatening, Hospitalization, Disabling, Other)
  Sender: Public
  Company Number: None

PATIENT
  Age: 58 Year
  Sex: Female

DRUGS (1)
  1. KEYTRUDA [Suspect]
     Active Substance: PEMBROLIZUMAB
     Indication: Lung neoplasm malignant

REACTIONS (9)
  - Chest pain [None]
  - Loss of consciousness [None]
  - Encephalitis [None]
  - Cognitive disorder [None]
  - Seizure [None]
  - Brain oedema [None]
  - Urinary retention [None]
  - Gait inability [None]
  - Anxiety [None]

NARRATIVE: CASE EVENT DATE: 20240501
